FAERS Safety Report 8447419-X (Version None)
Quarter: 2012Q2

REPORT INFORMATION
  Report Type: 
  Country: None (occurrence: None)
  Receive Date: 20120619
  Receipt Date: 20120528
  Transmission Date: 20120825
  Serious: Yes (Hospitalization)
  Sender: FDA-Public Use
  Company Number: AU-SANOFI-AVENTIS-2012SA024446

PATIENT
  Age: 68 Year
  Sex: Male
  Weight: 96 kg

DRUGS (3)
  1. PREDNISOLONE [Suspect]
     Indication: PROSTATE CANCER METASTATIC
     Route: 048
     Dates: start: 20111201
  2. CABAZITAXEL [Suspect]
     Indication: PROSTATE CANCER METASTATIC
     Route: 042
     Dates: start: 20111201, end: 20111201
  3. CABAZITAXEL [Suspect]
     Route: 042
     Dates: end: 20120315

REACTIONS (1)
  - PULMONARY EMBOLISM [None]
